FAERS Safety Report 9292035 (Version 2)
Quarter: 2013Q2

REPORT INFORMATION
  Report Type: Spontaneous
  Country: US (occurrence: US)
  Receive Date: 20130516
  Receipt Date: 20130612
  Transmission Date: 20140414
  Serious: No
  Sender: FDA-Public Use
  Company Number: US-009507513-1305USA003242

PATIENT
  Sex: Female
  Weight: 77.98 kg

DRUGS (1)
  1. ASMANEX TWISTHALER [Suspect]
     Dosage: 110 MICROGRAM/^ONE OR TWO PUFFS, TWICE DAILY^
     Route: 048
     Dates: start: 20130423

REACTIONS (3)
  - Drug dose omission [Unknown]
  - Product quality issue [Unknown]
  - No adverse event [Unknown]
